FAERS Safety Report 19467554 (Version 1)
Quarter: 2021Q2

REPORT INFORMATION
  Report Type: Spontaneous
  Country: US (occurrence: US)
  Receive Date: 20210628
  Receipt Date: 20210628
  Transmission Date: 20210717
  Serious: Yes (Hospitalization)
  Sender: FDA-Public Use
  Company Number: None

PATIENT
  Sex: Female

DRUGS (13)
  1. LEVOTHYROXIN [Concomitant]
     Active Substance: LEVOTHYROXINE
  2. MAGNESIUM [Concomitant]
     Active Substance: MAGNESIUM
  3. MONTELUKAST [Concomitant]
     Active Substance: MONTELUKAST SODIUM
  4. METFORMIN [Concomitant]
     Active Substance: METFORMIN HYDROCHLORIDE
  5. VIT B 12 [Concomitant]
     Active Substance: CYANOCOBALAMIN
  6. FLUTICASONE. [Concomitant]
     Active Substance: FLUTICASONE
  7. LISINOPRIL. [Concomitant]
     Active Substance: LISINOPRIL
  8. GLATIRAMER [Suspect]
     Active Substance: GLATIRAMER
     Indication: MULTIPLE SCLEROSIS
     Dosage: ?          OTHER FREQUENCY:TIW;?
     Route: 058
     Dates: start: 20190427
  9. ASPRIN LOW DOSE [Concomitant]
  10. ATORVASTATIN [Concomitant]
     Active Substance: ATORVASTATIN
  11. PLAVIX [Concomitant]
     Active Substance: CLOPIDOGREL BISULFATE
  12. CALCIUM D [Concomitant]
     Active Substance: CALCIUM\VITAMIN D
  13. NUDEXTA [Concomitant]

REACTIONS (2)
  - Therapy interrupted [None]
  - Multiple sclerosis [None]
